FAERS Safety Report 19815136 (Version 1)
Quarter: 2021Q3

REPORT INFORMATION
  Report Type: Spontaneous
  Country: CA (occurrence: CA)
  Receive Date: 20210909
  Receipt Date: 20210909
  Transmission Date: 20211014
  Serious: Yes (Hospitalization, Other)
  Sender: FDA-Public Use
  Company Number: CA-SA-2021SA291607

PATIENT
  Sex: Female

DRUGS (9)
  1. ESCITALOPRAM OXALATE. [Suspect]
     Active Substance: ESCITALOPRAM OXALATE
     Indication: PRODUCT USED FOR UNKNOWN INDICATION
     Dosage: 20 MG, QD
     Route: 048
  2. INSULIN LISPRO [Suspect]
     Active Substance: INSULIN LISPRO
     Indication: DIABETES MELLITUS
     Dosage: 1 DF
     Route: 048
  3. ESCITALOPRAM OXALATE. [Suspect]
     Active Substance: ESCITALOPRAM OXALATE
     Dosage: 10 MG, QD
     Route: 048
  4. LORAZEPAM. [Suspect]
     Active Substance: LORAZEPAM
     Indication: PRODUCT USED FOR UNKNOWN INDICATION
     Dosage: 1 DF
     Route: 048
  5. INSULIN LISPRO [Suspect]
     Active Substance: INSULIN LISPRO
     Dosage: UNK
     Route: 058
  6. TOPIRAMATE. [Concomitant]
     Active Substance: TOPIRAMATE
     Indication: PRODUCT USED FOR UNKNOWN INDICATION
     Dosage: UNK
  7. INSULIN LISPRO [Suspect]
     Active Substance: INSULIN LISPRO
     Indication: PRODUCT USED FOR UNKNOWN INDICATION
     Dosage: UNK
     Route: 048
  8. QUETIAPINE FUMARATE. [Suspect]
     Active Substance: QUETIAPINE FUMARATE
     Indication: PRODUCT USED FOR UNKNOWN INDICATION
     Dosage: UNK
     Route: 048
  9. ESCITALOPRAM OXALATE. [Suspect]
     Active Substance: ESCITALOPRAM OXALATE
     Dosage: UNK
     Route: 048

REACTIONS (3)
  - Intentional overdose [Unknown]
  - Incorrect route of product administration [Unknown]
  - Suicide attempt [Recovered/Resolved]
